FAERS Safety Report 19419951 (Version 2)
Quarter: 2021Q2

REPORT INFORMATION
  Report Type: Report from Study
  Country: US (occurrence: US)
  Receive Date: 20210615
  Receipt Date: 20210622
  Transmission Date: 20210717
  Serious: Yes (Hospitalization)
  Sender: FDA-Public Use
  Company Number: US-OTSUKA-2021_013551AA

PATIENT
  Age: 73 Year
  Sex: Female
  Weight: 97.98 kg

DRUGS (5)
  1. REMICADE [Concomitant]
     Active Substance: INFLIXIMAB
     Indication: PRODUCT USED FOR UNKNOWN INDICATION
     Dosage: UNK
     Route: 065
  2. METOPROLOL TARTRATE. [Concomitant]
     Active Substance: METOPROLOL TARTRATE
     Indication: PRODUCT USED FOR UNKNOWN INDICATION
     Dosage: UNK
     Route: 065
  3. VITAMIN B COMPLEX [Concomitant]
     Active Substance: CYANOCOBALAMIN\DEXPANTHENOL\NIACINAMIDE\PYRIDOXINE HYDROCHLORIDE\RIBOFLAVIN 5^-PHOSPHATE SODIUM\THIAMINE HYDROCHLORIDE\VITAMIN B COMPLEX
     Indication: PRODUCT USED FOR UNKNOWN INDICATION
     Dosage: UNK
     Route: 065
  4. ASTX727 [Suspect]
     Active Substance: CEDAZURIDINE\DECITABINE
     Indication: PRODUCT USED FOR UNKNOWN INDICATION
     Dosage: 35?100 MG (35 MG DECITABINE AND 100 MG CEDAZURIDINE), QD (ON DAYS 1?5) EVERY 28 DAYS
     Route: 048
     Dates: start: 20210408
  5. IMODIUM A?D [Concomitant]
     Active Substance: LOPERAMIDE HYDROCHLORIDE
     Indication: PRODUCT USED FOR UNKNOWN INDICATION
     Dosage: UNK
     Route: 065

REACTIONS (5)
  - Product dose omission issue [Unknown]
  - White blood cell count decreased [Recovered/Resolved]
  - Adverse drug reaction [Unknown]
  - Sciatica [Unknown]
  - Illness [Unknown]

NARRATIVE: CASE EVENT DATE: 20210504
